FAERS Safety Report 4586085-0 (Version None)
Quarter: 2005Q1

REPORT INFORMATION
  Report Type: 
  Country: None (occurrence: None)
  Receive Date: 20050125
  Receipt Date: 20040908
  Transmission Date: 20050727
  Serious: No
  Sender: FDA-Public Use
  Company Number: USA040977745

PATIENT
  Age: 56 Year
  Sex: Male

DRUGS (14)
  1. FORTEO [Suspect]
     Indication: OSTEOPOROSIS
     Dosage: 20 UG/1 DAY
     Dates: start: 20040701, end: 20040905
  2. DAYPRO [Concomitant]
  3. GLUCOVANCE [Concomitant]
  4. NEXIUM [Concomitant]
  5. LOPID [Concomitant]
  6. LIPITOR [Concomitant]
  7. ZIAC [Concomitant]
  8. HYZAAR [Concomitant]
  9. ALLOPURINOL [Concomitant]
  10. SODIUM BICARBONATE [Concomitant]
  11. ASPIRIN (ACETYSALICYLIC ACID) [Concomitant]
  12. ULTRAM [Concomitant]
  13. OSCAL (CALCIUM CARBONATE) [Concomitant]
  14. MULTIVITAMIN [Concomitant]

REACTIONS (4)
  - ARTHRALGIA [None]
  - CHILLS [None]
  - CONSTIPATION [None]
  - PAIN IN EXTREMITY [None]
